FAERS Safety Report 4420034-0 (Version None)
Quarter: 2004Q3

REPORT INFORMATION
  Report Type: 
  Country: None (occurrence: None)
  Receive Date: 20040804
  Receipt Date: 20040722
  Transmission Date: 20050211
  Serious: Yes (Hospitalization, Other)
  Sender: FDA-Public Use
  Company Number: 2004050268

PATIENT
  Sex: Male
  Weight: 99.7913 kg

DRUGS (8)
  1. ZOLOFT [Suspect]
     Indication: POST-TRAUMATIC STRESS DISORDER
     Dosage: 200 MG, (1 IN 1 D), ORAL
     Route: 048
  2. EZETIMIBE (EZETIMIBE) [Concomitant]
  3. SIMVASTATIN [Concomitant]
  4. ACETYLSALICYLIC ACIDE           (ACETYLSALICYLIC ACID) [Concomitant]
  5. RABEPRAZOLE SODIUM [Concomitant]
  6. ETODOLAC [Concomitant]
  7. LORATADINE [Concomitant]
  8. VITAMINS (VITAMINS) [Concomitant]

REACTIONS (7)
  - AMNESIA [None]
  - ERECTILE DYSFUNCTION [None]
  - FATIGUE [None]
  - ILL-DEFINED DISORDER [None]
  - SUICIDAL IDEATION [None]
  - THINKING ABNORMAL [None]
  - THROMBOSIS [None]
